FAERS Safety Report 10659862 (Version 1)
Quarter: 2014Q4

REPORT INFORMATION
  Report Type: Spontaneous
  Country: DK (occurrence: FR)
  Receive Date: 20141217
  Receipt Date: 20141217
  Transmission Date: 20150529
  Serious: Yes (Hospitalization)
  Sender: FDA-Public Use
  Company Number: FR-FRI-1000073137

PATIENT
  Age: 81 Year
  Sex: Female

DRUGS (5)
  1. INNOHEP [Suspect]
     Active Substance: TINZAPARIN SODIUM
     Dosage: 1 DF
     Route: 058
  2. INNOHEP [Suspect]
     Active Substance: TINZAPARIN SODIUM
     Indication: DEEP VEIN THROMBOSIS
     Dosage: 1 DF
     Route: 058
     Dates: start: 20141023, end: 20141028
  3. PREVISCAN [Suspect]
     Active Substance: FLUINDIONE
     Indication: DEEP VEIN THROMBOSIS
     Dosage: 0.5 DF
     Route: 048
     Dates: start: 20141023, end: 20141028
  4. PREVISCAN [Suspect]
     Active Substance: FLUINDIONE
     Dosage: 0.5 DF
     Route: 048
  5. ESCITALOPRAM [Suspect]
     Active Substance: ESCITALOPRAM OXALATE
     Indication: PRODUCT USED FOR UNKNOWN INDICATION
     Route: 048
     Dates: end: 20141028

REACTIONS (2)
  - Retroperitoneal haematoma [Recovered/Resolved]
  - Drug interaction [Recovered/Resolved]

NARRATIVE: CASE EVENT DATE: 20141028
